FAERS Safety Report 9965828 (Version 1)
Quarter: 2014Q1

REPORT INFORMATION
  Report Type: Report from Study
  Country: US (occurrence: US)
  Receive Date: 20140305
  Receipt Date: 20140305
  Transmission Date: 20141002
  Serious: No
  Sender: FDA-Public Use
  Company Number: US-ABBVIE-13P-163-1123303-00

PATIENT
  Age: 51 Year
  Sex: Female

DRUGS (20)
  1. HUMIRA [Suspect]
     Indication: RHEUMATOID ARTHRITIS
     Dates: start: 201103
  2. HUMIRA [Suspect]
     Dates: start: 201304
  3. ALBUTEROL [Concomitant]
     Indication: ASTHMA
     Dosage: NEBULIZER UO TO 3 TIMES PER DAY
  4. TRIAMT/HCTZ [Concomitant]
     Indication: HYPERTENSION
     Dosage: 37.5/25 MG
  5. HYOSCYAMINE [Concomitant]
     Indication: DYSPEPSIA
     Dosage: UP TO 4 TIMES A DAY
  6. GABAPENTIN [Concomitant]
     Indication: PRODUCT USED FOR UNKNOWN INDICATION
  7. ROBAXIN [Concomitant]
     Indication: MUSCLE SPASMS
     Dosage: UP TO 4 TIMES PER DAY
  8. PLAQUENIL [Concomitant]
     Indication: ARTHRITIS
     Dosage: 200 MG DAILY
  9. PLAQUENIL [Concomitant]
     Indication: FIBROMYALGIA
  10. CITALOPRAM [Concomitant]
     Indication: DEPRESSION
     Dosage: 20 MG DAILY
  11. BUPROPION HCL [Concomitant]
     Indication: DEPRESSION
     Dosage: 200 MG DAILY
  12. PREVACID [Concomitant]
     Indication: GASTROOESOPHAGEAL REFLUX DISEASE
     Dosage: 15
  13. DICYCLOMINE [Concomitant]
     Indication: GASTROOESOPHAGEAL REFLUX DISEASE
     Dosage: UP TO 4 TIMES PER DAY
  14. DICYCLOMINE [Concomitant]
     Indication: DYSPEPSIA
  15. ASPIRIN [Concomitant]
     Indication: PRODUCT USED FOR UNKNOWN INDICATION
     Dosage: 80 MG DAILY
  16. SULFASALAZINE [Concomitant]
     Indication: PRODUCT USED FOR UNKNOWN INDICATION
     Dosage: 2 IN MORNING + 2 AT MID-DAY + 2 AT NIGHT
  17. ADDERALL [Concomitant]
     Indication: ATTENTION DEFICIT/HYPERACTIVITY DISORDER
     Dosage: 20 MG TWICE DAILY AS NEEDED
  18. OXYCODONE [Concomitant]
     Indication: PRODUCT USED FOR UNKNOWN INDICATION
     Dosage: UP TO 4 TIMES PER DAY
  19. ACYCLOVIR [Concomitant]
     Indication: ORAL HERPES
     Dosage: AS NEEDED
  20. MELOXICAM [Concomitant]
     Indication: PRODUCT USED FOR UNKNOWN INDICATION
     Dosage: 15 MG DAILY

REACTIONS (6)
  - Rash erythematous [Not Recovered/Not Resolved]
  - Drug effect incomplete [Unknown]
  - Contusion [Unknown]
  - Pain [Not Recovered/Not Resolved]
  - Arthralgia [Unknown]
  - Skin discolouration [Unknown]
